FAERS Safety Report 5513839-6 (Version None)
Quarter: 2007Q4

REPORT INFORMATION
  Report Type: 
  Country: None (occurrence: None)
  Receive Date: 20071113
  Receipt Date: 20071106
  Transmission Date: 20080405
  Serious: Yes (Other)
  Sender: FDA-Public Use
  Company Number: US-BAYER-200711511BWH

PATIENT
  Age: 51 Year
  Sex: Female
  Weight: 54 kg

DRUGS (7)
  1. AVELOX [Suspect]
     Indication: UPPER RESPIRATORY TRACT INFECTION
     Dosage: TOTAL DAILY DOSE: 400 MG  UNIT DOSE: 400 MG
     Route: 048
     Dates: start: 20031124, end: 20031126
  2. ATENOLOL WITH CHLORTHALIDONE [Concomitant]
  3. PREVACID [Concomitant]
     Dates: end: 20070101
  4. CYMBALTA [Concomitant]
  5. CYMBALTA [Concomitant]
     Indication: NEUROPATHY
  6. BONIVA [Concomitant]
  7. GABAPENTIN [Concomitant]
     Indication: NEUROPATHY

REACTIONS (7)
  - ERYTHEMA [None]
  - FEELING HOT [None]
  - FLUSHING [None]
  - GAIT DISTURBANCE [None]
  - MOBILITY DECREASED [None]
  - SKIN DISCOLOURATION [None]
  - SKIN HYPERTROPHY [None]
